FAERS Safety Report 7313585 (Version 2)
Quarter: 2014Q1

REPORT INFORMATION
  Report Type: Spontaneous
  Country: US (occurrence: None)
  Receive Date: 20100217
  Receipt Date: 20140219
  Transmission Date: 20141002
  Serious: Yes (Other)
  Sender: FDA-Public Use
  Company Number: 2010S1000873

PATIENT
  Age: 58 Year
  Sex: Male

DRUGS (3)
  1. FLEET PHOSPHO-SODA [Suspect]
     Indication: PRODUCT USED FOR UNKNOWN INDICATION
     Dosage: ; PO
     Route: 048
     Dates: start: 1999, end: 1999
  2. CARDURA [Concomitant]
  3. VIAGRA [Concomitant]

REACTIONS (5)
  - Renal disorder [None]
  - Sinus tachycardia [None]
  - Peripheral artery stenosis [None]
  - Renal failure chronic [None]
  - Nephrosclerosis [None]
